FAERS Safety Report 8180184-2 (Version None)
Quarter: 2012Q1

REPORT INFORMATION
  Report Type: 
  Country: None (occurrence: None)
  Receive Date: 20120302
  Receipt Date: 20120217
  Transmission Date: 20120608
  Serious: Yes (Other)
  Sender: FDA-Public Use
  Company Number: US-MYLANLABS-2012S1003917

PATIENT
  Sex: Female

DRUGS (3)
  1. VALPROIC ACID [Suspect]
     Dosage: 300MG AT LAST MENSTRUAL PERIOD
     Route: 065
  2. CARBAMAZEPINE [Suspect]
     Dosage: 600MG
     Route: 065
  3. VALPROIC ACID [Suspect]
     Dosage: 3500MG AT 6 WEEKS
     Route: 065

REACTIONS (2)
  - MENINGOMYELOCELE [None]
  - MATERNAL EXPOSURE DURING PREGNANCY [None]
